FAERS Safety Report 5266976-8 (Version None)
Quarter: 2007Q1

REPORT INFORMATION
  Report Type: 
  Country: None (occurrence: None)
  Receive Date: 20070313
  Receipt Date: 20070302
  Transmission Date: 20070707
  Serious: Yes (Hospitalization)
  Sender: FDA-Public Use
  Company Number: 231689K07USA

PATIENT
  Age: 44 Year
  Sex: Female

DRUGS (2)
  1. REBIF [Suspect]
     Indication: MULTIPLE SCLEROSIS
     Dosage: 44 MCG, 3 IN 1 WEEKS, SUBCUTANEOUS
     Route: 058
     Dates: start: 20060322
  2. INTRAVENOUS STEROID (CORTICOSTEROIDS FOR SYSTEMIC USE) [Suspect]
     Dosage: NOT REPORTED, NOT REPORTED, INTRAVENOUS (NOT OTHERWISE SPECIFIED)
     Route: 042
     Dates: start: 20070201

REACTIONS (15)
  - ABASIA [None]
  - BURNING SENSATION [None]
  - CONDITION AGGRAVATED [None]
  - CONVULSION [None]
  - DRUG ADMINISTRATION ERROR [None]
  - EXTRAVASATION [None]
  - HEART RATE ABNORMAL [None]
  - HYPOAESTHESIA [None]
  - INJECTION SITE BRUISING [None]
  - INJECTION SITE IRRITATION [None]
  - INJECTION SITE REACTION [None]
  - MULTIPLE SCLEROSIS [None]
  - PRURITUS [None]
  - SKIN EXFOLIATION [None]
  - VISION BLURRED [None]
